FAERS Safety Report 5533901-1 (Version None)
Quarter: 2007Q4

REPORT INFORMATION
  Report Type: 
  Country: None (occurrence: None)
  Receive Date: 20071129
  Receipt Date: 20071112
  Transmission Date: 20080405
  Serious: Yes (Other)
  Sender: FDA-Public Use
  Company Number: 000#8#2007-00322

PATIENT
  Age: 78 Year
  Sex: Male

DRUGS (3)
  1. ISOSORBIDE MONONITRATE [Suspect]
     Indication: ANGINA PECTORIS
     Dosage: 80 MG (40 MG 2 IN 1 DAY(S))
  2. DILTIAZEM [Suspect]
     Indication: ANGINA PECTORIS
     Dosage: 400 MG (200 MG 2 IN 1 DAY (S))
  3. TOCOPHEROL CONCENTRATE CAP [Suspect]
     Indication: ANGINA PECTORIS
     Dosage: 900 (300 MG 3 IN 1 DAY (S))

REACTIONS (4)
  - ARTERIOSPASM CORONARY [None]
  - CORONARY ARTERY OCCLUSION [None]
  - DISEASE RECURRENCE [None]
  - DRUG INEFFECTIVE [None]
